FAERS Safety Report 6521607-1 (Version None)
Quarter: 2009Q4

REPORT INFORMATION
  Report Type: 
  Country: None (occurrence: None)
  Receive Date: 20091230
  Receipt Date: 20091217
  Transmission Date: 20100525
  Serious: Yes (Hospitalization)
  Sender: FDA-Public Use
  Company Number: PHHY2009CA53868

PATIENT
  Sex: Female

DRUGS (8)
  1. CLOZARIL [Suspect]
     Indication: SCHIZOPHRENIA
     Dosage: 12.5 MG, QHS
     Dates: start: 20091008, end: 20091202
  2. CLOZARIL [Suspect]
     Dosage: 25 MG, QHS
  3. SINEMET [Concomitant]
  4. SINEMET CR [Concomitant]
     Dosage: 1 DF, BID
  5. AMANTADINE HCL [Concomitant]
     Dosage: 15 MG, QD
  6. CITALOPRAM HYDROBROMIDE [Concomitant]
     Dosage: 10 MG, QHS
  7. QUETIAPINE [Concomitant]
     Dosage: 50 MG, QHS
  8. LANSOPRAZOLE [Concomitant]
     Dosage: 30 MG DAILY

REACTIONS (3)
  - HAEMOGLOBIN DECREASED [None]
  - KNEE OPERATION [None]
  - SOMNOLENCE [None]
